FAERS Safety Report 4440521-9 (Version None)
Quarter: 2004Q3

REPORT INFORMATION
  Report Type: 
  Country: None (occurrence: None)
  Receive Date: 20040728
  Receipt Date: 20040308
  Transmission Date: 20050211
  Serious: No
  Sender: FDA-Public Use
  Company Number: USA030537995

PATIENT
  Age: 9 Year
  Sex: Male
  Weight: 32 kg

DRUGS (2)
  1. STRATTERA [Suspect]
     Indication: ATTENTION DEFICIT/HYPERACTIVITY DISORDER
     Dosage: 40 MG/DAY
     Dates: start: 20030301
  2. ALLERGY CHLORPHENAMINE) [Concomitant]

REACTIONS (9)
  - DECREASED APPETITE [None]
  - DEPRESSED MOOD [None]
  - DISTURBANCE IN ATTENTION [None]
  - FATIGUE [None]
  - MOOD SWINGS [None]
  - SOMNOLENCE [None]
  - UPPER LIMB FRACTURE [None]
  - WEIGHT DECREASED [None]
  - WEIGHT INCREASED [None]
